FAERS Safety Report 9616872 (Version 2)
Quarter: 2014Q1

REPORT INFORMATION
  Report Type: Spontaneous
  Country: NO (occurrence: NO)
  Receive Date: 20131011
  Receipt Date: 20140115
  Transmission Date: 20141002
  Serious: Yes (Other)
  Sender: FDA-Public Use
  Company Number: PHHY2013NO113840

PATIENT
  Sex: Female

DRUGS (1)
  1. ZOMETA [Suspect]
     Dosage: UNK UKN, UNK
     Route: 041
     Dates: start: 20131003

REACTIONS (7)
  - Hypersensitivity [Unknown]
  - Conjunctival oedema [Unknown]
  - Headache [Unknown]
  - Facial pain [Unknown]
  - Oral pain [Unknown]
  - Eye pain [Unknown]
  - Eye disorder [Unknown]
